FAERS Safety Report 18621179 (Version 1)
Quarter: 2020Q4

REPORT INFORMATION
  Report Type: Spontaneous
  Country: TH (occurrence: TH)
  Receive Date: 20201216
  Receipt Date: 20201216
  Transmission Date: 20210114
  Serious: Yes (Hospitalization)
  Sender: FDA-Public Use
  Company Number: TH-ROCHE-2732417

PATIENT
  Age: 55 Year
  Sex: Female

DRUGS (10)
  1. NUELIN SR [Concomitant]
     Active Substance: THEOPHYLLINE ANHYDROUS
     Indication: PRODUCT USED FOR UNKNOWN INDICATION
     Dosage: 0.5 DF, BID
     Route: 048
  2. OMEPRAZOLE. [Concomitant]
     Active Substance: OMEPRAZOLE
     Indication: PRODUCT USED FOR UNKNOWN INDICATION
     Dosage: 1 DF, BID (AC)
     Route: 048
  3. MONTEK [Concomitant]
     Indication: PRODUCT USED FOR UNKNOWN INDICATION
     Dosage: 1 DF HS
     Route: 048
  4. LORATADINE. [Concomitant]
     Active Substance: LORATADINE
     Indication: PRODUCT USED FOR UNKNOWN INDICATION
     Dosage: 1 DF, QD (PC)
     Route: 048
  5. XOLAIR [Suspect]
     Active Substance: OMALIZUMAB
     Indication: ASTHMA
     Dosage: (LT ARM SC, 1.2ML) (FIRST DOSE)
     Route: 058
     Dates: start: 20180423
  6. SPIRIVA [Concomitant]
     Active Substance: TIOTROPIUM BROMIDE MONOHYDRATE
     Indication: PRODUCT USED FOR UNKNOWN INDICATION
     Dosage: 1 DF, QD (MORNING), HANDIHALER 1 PUFF
     Route: 065
  7. DOMPERIDONE [Concomitant]
     Active Substance: DOMPERIDONE
     Indication: PRODUCT USED FOR UNKNOWN INDICATION
     Dosage: 1 DF, TID (AC)
     Route: 048
  8. XOLAIR [Suspect]
     Active Substance: OMALIZUMAB
     Dosage: (LT ARM SC, 1.2ML) (FIRST DOSE)
     Route: 058
     Dates: start: 20180523
  9. XOLAIR [Suspect]
     Active Substance: OMALIZUMAB
     Dosage: (LT ARM SC, 1.2ML) (FIRST DOSE)
     Route: 058
     Dates: start: 20190218, end: 20190218
  10. FOSTER [Concomitant]
     Active Substance: BECLOMETHASONE\FORMOTEROL
     Indication: PRODUCT USED FOR UNKNOWN INDICATION
     Dosage: 2 DF, BID PUFF, (MORNING-EVENING)
     Route: 065

REACTIONS (10)
  - Wheezing [Unknown]
  - Nasal congestion [Unknown]
  - Asthma [Unknown]
  - Dyspnoea [Unknown]
  - Forced expiratory volume abnormal [Unknown]
  - Pyrexia [Unknown]
  - Cough [Unknown]
  - Nasopharyngitis [Unknown]
  - Fatigue [Unknown]
  - Oxygen saturation decreased [Unknown]

NARRATIVE: CASE EVENT DATE: 20180423
